FAERS Safety Report 17841749 (Version 1)
Quarter: 2020Q2

REPORT INFORMATION
  Report Type: Spontaneous
  Country: DE (occurrence: DE)
  Receive Date: 20200529
  Receipt Date: 20200529
  Transmission Date: 20200714
  Serious: Yes (Hospitalization)
  Sender: FDA-Public Use
  Company Number: DE-009507513-2005DEU007758

PATIENT
  Age: 27 Year
  Sex: Female

DRUGS (5)
  1. GONAL-F [Suspect]
     Active Substance: FOLLITROPIN
  2. TRIPTORELIN ACETATE [Suspect]
     Active Substance: TRIPTORELIN ACETATE
  3. ESTRIFAM [Suspect]
     Active Substance: ESTRADIOL
  4. ORGALUTRAN [Suspect]
     Active Substance: GANIRELIX ACETATE
  5. PROGESTAN [Suspect]
     Active Substance: PROGESTERONE

REACTIONS (2)
  - Hospitalisation [Recovered/Resolved]
  - Ovarian hyperstimulation syndrome [Recovered/Resolved]

NARRATIVE: CASE EVENT DATE: 20151015
